FAERS Safety Report 14313945 (Version 1)
Quarter: 2017Q4

REPORT INFORMATION
  Report Type: Spontaneous
  Country: CN (occurrence: CN)
  Receive Date: 20171221
  Receipt Date: 20171221
  Transmission Date: 20180321
  Serious: Yes (Hospitalization, Other)
  Sender: FDA-Public Use
  Company Number: CN-GLAXOSMITHKLINE-CN2017GSK196580

PATIENT
  Age: 38 Year
  Sex: Female

DRUGS (2)
  1. VALTREX [Suspect]
     Active Substance: VALACYCLOVIR HYDROCHLORIDE
     Indication: HERPES ZOSTER
     Dosage: 1 G, 1D
     Route: 048
  2. DEXAMETHASONE. [Concomitant]
     Active Substance: DEXAMETHASONE
     Indication: PRODUCT USED FOR UNKNOWN INDICATION

REACTIONS (21)
  - Speech disorder [Recovered/Resolved]
  - Face oedema [Recovered/Resolved]
  - Poor quality sleep [Recovered/Resolved]
  - Conjunctivitis [Recovered/Resolved]
  - Mental fatigue [Recovered/Resolved]
  - Clonus [Recovered/Resolved]
  - Asthenia [Recovered/Resolved]
  - Hallucination [Recovered/Resolved]
  - Anuria [Recovered/Resolved]
  - Cerebral infarction [Recovered/Resolved]
  - Anaemia [Recovered/Resolved]
  - Muscle tightness [Recovered/Resolved]
  - Dizziness [Recovered/Resolved]
  - Delirium [Recovered/Resolved]
  - Decreased appetite [Recovered/Resolved]
  - Cognitive disorder [Recovered/Resolved]
  - Sinus tachycardia [Recovered/Resolved]
  - Headache [Recovered/Resolved]
  - Hyperreflexia [Recovered/Resolved]
  - Neuropsychiatric symptoms [Recovered/Resolved]
  - Gait disturbance [Recovered/Resolved]
